FAERS Safety Report 12751754 (Version 1)
Quarter: 2016Q3

REPORT INFORMATION
  Report Type: Spontaneous
  Country: FR (occurrence: FR)
  Receive Date: 20160915
  Receipt Date: 20160915
  Transmission Date: 20161109
  Serious: Yes (Life-Threatening, Hospitalization)
  Sender: FDA-Public Use
  Company Number: FR-JAZZ-2015-FR-016848

PATIENT

DRUGS (12)
  1. VINCRISTINE [Concomitant]
     Active Substance: VINCRISTINE
     Dosage: 1.5 MG/M2, SINGLE
     Route: 042
     Dates: start: 20150603, end: 20150603
  2. METHOTREXATE. [Concomitant]
     Active Substance: METHOTREXATE
     Indication: ACUTE LYMPHOCYTIC LEUKAEMIA
     Dosage: 100 MG/M2, SINGLE
     Route: 042
     Dates: start: 20150504, end: 20150504
  3. METHOTREXATE. [Concomitant]
     Active Substance: METHOTREXATE
     Dosage: 100 MG/M2, SINGLE
     Route: 042
     Dates: start: 20150524, end: 20150524
  4. METHOTREXATE. [Concomitant]
     Active Substance: METHOTREXATE
     Dosage: 100 MG/M2, SINGLE
     Route: 042
     Dates: start: 20150603, end: 20150603
  5. KIDROLASE [Concomitant]
     Active Substance: ASPARAGINASE
     Indication: ACUTE LYMPHOCYTIC LEUKAEMIA
     Dosage: 20000 IU/M2, SINGLE
     Route: 042
     Dates: start: 20150505, end: 20150505
  6. KIDROLASE [Concomitant]
     Active Substance: ASPARAGINASE
     Dosage: 20000 IU/M2, SINGLE
     Route: 042
     Dates: start: 20150524, end: 20150524
  7. ERWINASE [Suspect]
     Active Substance: ASPARAGINASE ERWINIA CHRYSANTHEMI
     Indication: ACUTE LYMPHOCYTIC LEUKAEMIA
     Dosage: UNK
     Dates: start: 20150528, end: 20150616
  8. VINCRISTINE [Concomitant]
     Active Substance: VINCRISTINE
     Indication: ACUTE LYMPHOCYTIC LEUKAEMIA
     Dosage: 1.5 MG/M2, SINGLE
     Route: 042
     Dates: start: 20150504, end: 20150504
  9. VINCRISTINE [Concomitant]
     Active Substance: VINCRISTINE
     Dosage: 1.5 MG/M2, SINGLE
     Route: 042
     Dates: start: 20150524, end: 20150524
  10. KIDROLASE [Concomitant]
     Active Substance: ASPARAGINASE
     Dosage: 20000 IU/M2, SINGLE
     Route: 042
     Dates: start: 20150514, end: 20150514
  11. VINCRISTINE [Concomitant]
     Active Substance: VINCRISTINE
     Dosage: 1.5 MG/M2, SINGLE
     Route: 042
     Dates: start: 20150514, end: 20150514
  12. METHOTREXATE. [Concomitant]
     Active Substance: METHOTREXATE
     Dosage: 100 MG/M2, SINGLE
     Route: 042
     Dates: start: 20150514, end: 20150514

REACTIONS (2)
  - Anaphylactic shock [Recovered/Resolved]
  - Hypersensitivity [Recovered/Resolved]

NARRATIVE: CASE EVENT DATE: 20150606
